FAERS Safety Report 7548374-7 (Version None)
Quarter: 2011Q2

REPORT INFORMATION
  Report Type: 
  Country: None (occurrence: None)
  Receive Date: 20110608
  Receipt Date: 20110527
  Transmission Date: 20111010
  Serious: Yes (Death)
  Sender: FDA-Public Use
  Company Number: JP-2011-10794

PATIENT
  Age: 85 Year
  Sex: Male

DRUGS (1)
  1. SAMSCA [Suspect]
     Indication: CARDIAC FAILURE CHRONIC
     Dosage: 7.5 MG MILLIGRAM(S), DAILY DOSE, PARENTERAL
     Route: 051

REACTIONS (1)
  - CARDIAC FAILURE ACUTE [None]
